FAERS Safety Report 9772672 (Version 1)
Quarter: 2013Q4

REPORT INFORMATION
  Report Type: Spontaneous
  Country: FR (occurrence: FR)
  Receive Date: 20131219
  Receipt Date: 20131219
  Transmission Date: 20140711
  Serious: Yes (Hospitalization, Other)
  Sender: FDA-Public Use
  Company Number: FR-PFIZER INC-2013360263

PATIENT
  Age: 42 Year
  Sex: Female

DRUGS (4)
  1. LYRICA [Suspect]
     Indication: SUICIDE ATTEMPT
     Dosage: UNK
     Dates: start: 20131204, end: 20131204
  2. TRAMADOL HCL [Suspect]
     Indication: SUICIDE ATTEMPT
     Dosage: UNK
     Dates: start: 20131204, end: 20131204
  3. CYMBALTA [Suspect]
     Indication: SUICIDE ATTEMPT
     Dosage: UNK
     Dates: start: 20131204, end: 20131204
  4. SERESTA [Suspect]
     Indication: SUICIDE ATTEMPT
     Dosage: UNK
     Dates: start: 20131204, end: 20131204

REACTIONS (8)
  - Intentional overdose [Unknown]
  - Suicide attempt [Unknown]
  - Hallucination [Recovered/Resolved]
  - Tremor [Recovered/Resolved]
  - Nystagmus [Recovered/Resolved]
  - Coma [Unknown]
  - Confusional state [Unknown]
  - Abdominal rigidity [Unknown]
